FAERS Safety Report 7911792-9 (Version None)
Quarter: 2011Q4

REPORT INFORMATION
  Report Type: 
  Country: None (occurrence: None)
  Receive Date: 20111114
  Receipt Date: 20111114
  Transmission Date: 20120403
  Serious: Yes (Life-Threatening)
  Sender: FDA-Public Use
  Company Number: None

PATIENT
  Sex: Female
  Weight: 81.646 kg

DRUGS (2)
  1. ACIPHEX [Suspect]
     Indication: GASTROOESOPHAGEAL REFLUX DISEASE
     Dosage: 20 MG TABLET
     Route: 048
     Dates: start: 20101026, end: 20111107
  2. ACIPHEX [Suspect]
     Indication: HELICOBACTER INFECTION
     Dosage: 20 MG TABLET
     Route: 048
     Dates: start: 20101026, end: 20111107

REACTIONS (5)
  - FATIGUE [None]
  - ARRHYTHMIA [None]
  - LOSS OF CONSCIOUSNESS [None]
  - MUSCLE SPASMS [None]
  - DIZZINESS [None]
